FAERS Safety Report 16138011 (Version 2)
Quarter: 2019Q3

REPORT INFORMATION
  Report Type: Spontaneous
  Country: US (occurrence: US)
  Receive Date: 20190330
  Receipt Date: 20190912
  Transmission Date: 20191004
  Serious: No
  Sender: FDA-Public Use
  Company Number: US-MICRO LABS LIMITED-ML2019-00003

PATIENT
  Age: 58 Year
  Sex: Female
  Weight: 65.77 kg

DRUGS (7)
  1. CROMOLYN SODIUM ORAL SOLUTION 100 MG/5 ML [Suspect]
     Active Substance: CROMOLYN SODIUM
     Indication: MAST CELL ACTIVATION SYNDROME
     Dosage: STRENGTH: 100 MG/5 ML?DOSE: 3 AMPULES/3 TIMES PER DAY
     Route: 048
     Dates: start: 20181229
  2. VITAMIN D [Concomitant]
     Active Substance: VITAMIN D NOS
     Indication: MAST CELL ACTIVATION SYNDROME
  3. ASPIRIN. [Concomitant]
     Active Substance: ASPIRIN
     Indication: MAST CELL ACTIVATION SYNDROME
     Dosage: 4 PER DAY AND EACH OF 325 MG EACH
  4. ALLEGRA [Concomitant]
     Active Substance: FEXOFENADINE HYDROCHLORIDE
     Indication: MAST CELL ACTIVATION SYNDROME
  5. ZYRTEC [Concomitant]
     Active Substance: CETIRIZINE HYDROCHLORIDE
     Indication: MAST CELL ACTIVATION SYNDROME
  6. VITAMIN B12 [Concomitant]
     Active Substance: CYANOCOBALAMIN
     Indication: MAST CELL ACTIVATION SYNDROME
  7. QUERCETIN [Concomitant]
     Active Substance: QUERCETIN
     Indication: MAST CELL ACTIVATION SYNDROME

REACTIONS (5)
  - Diarrhoea [Recovered/Resolved]
  - Product substitution issue [Unknown]
  - Drug ineffective [Unknown]
  - Cognitive disorder [Recovered/Resolved]
  - Abdominal pain [Recovered/Resolved]

NARRATIVE: CASE EVENT DATE: 20181231
